FAERS Safety Report 17102966 (Version 1)
Quarter: 2019Q4

REPORT INFORMATION
  Report Type: Spontaneous
  Country: US (occurrence: US)
  Receive Date: 20191202
  Receipt Date: 20191202
  Transmission Date: 20200122
  Serious: Yes (Other)
  Sender: FDA-Public Use
  Company Number: None

PATIENT
  Age: 53 Year
  Sex: Male
  Weight: 146.25 kg

DRUGS (1)
  1. MUCINEX [Suspect]
     Active Substance: GUAIFENESIN
     Indication: MUCOSAL DISORDER
     Dosage: ?          QUANTITY:100 TABLET(S);?
     Route: 048
     Dates: start: 20191102, end: 20191129

REACTIONS (4)
  - Ill-defined disorder [None]
  - Vomiting [None]
  - Hot flush [None]
  - Chills [None]

NARRATIVE: CASE EVENT DATE: 20191129
